FAERS Safety Report 10304593 (Version 1)
Quarter: 2014Q3

REPORT INFORMATION
  Report Type: Spontaneous
  Country: US (occurrence: US)
  Receive Date: 20140715
  Receipt Date: 20140715
  Transmission Date: 20150326
  Serious: No
  Sender: FDA-Public Use
  Company Number: US-BIOGENIDEC-2014BI067870

PATIENT
  Age: 60 Year
  Sex: Female

DRUGS (21)
  1. CELEXA [Concomitant]
     Active Substance: CITALOPRAM HYDROBROMIDE
  2. LOPRESSOR [Concomitant]
     Active Substance: METOPROLOL TARTRATE
  3. SIMVASTATIN. [Concomitant]
     Active Substance: SIMVASTATIN
  4. PAXIL [Concomitant]
     Active Substance: PAROXETINE HYDROCHLORIDE
  5. FUROSEMIDE. [Concomitant]
     Active Substance: FUROSEMIDE
  6. FENTANYL. [Concomitant]
     Active Substance: FENTANYL
  7. NISOLDIPINE. [Concomitant]
     Active Substance: NISOLDIPINE
  8. FIORICET [Concomitant]
     Active Substance: ACETAMINOPHEN\BUTALBITAL\CAFFEINE
  9. FOLIC ACID. [Concomitant]
     Active Substance: FOLIC ACID
  10. SYNTHROID [Concomitant]
     Active Substance: LEVOTHYROXINE SODIUM
  11. VITAMIN D [Concomitant]
     Active Substance: CHOLECALCIFEROL
  12. AVONEX [Suspect]
     Active Substance: INTERFERON BETA-1A
     Indication: MULTIPLE SCLEROSIS
     Route: 030
     Dates: start: 20120417
  13. ASPIRIN. [Concomitant]
     Active Substance: ASPIRIN
  14. CARISOPRODOL-ASPIRIN-CODEINE [Concomitant]
  15. NITRO-TIME [Concomitant]
     Active Substance: NITROGLYCERIN
  16. ULTRAM [Concomitant]
     Active Substance: TRAMADOL HYDROCHLORIDE
  17. REMERON [Concomitant]
     Active Substance: MIRTAZAPINE
  18. POTASSIUM CHLORIDE CRYS CR [Concomitant]
  19. HYDRALAZINE HCL [Concomitant]
     Active Substance: HYDRALAZINE HYDROCHLORIDE
  20. RANEXA [Concomitant]
     Active Substance: RANOLAZINE
  21. PROMETHAZINE HCL [Concomitant]
     Active Substance: PROMETHAZINE HYDROCHLORIDE

REACTIONS (2)
  - Nasopharyngitis [Unknown]
  - Rhinitis [Unknown]

NARRATIVE: CASE EVENT DATE: 20140616
